FAERS Safety Report 7076519-4 (Version None)
Quarter: 2010Q4

REPORT INFORMATION
  Report Type: 
  Country: None (occurrence: None)
  Receive Date: 20101029
  Receipt Date: 20101029
  Transmission Date: 20110411
  Serious: Yes (Other)
  Sender: FDA-Public Use
  Company Number: None

PATIENT
  Sex: Female
  Weight: 63.5036 kg

DRUGS (3)
  1. OXYCONTIN [Suspect]
     Indication: BACK DISORDER
     Dosage: 20MG DAILY
     Dates: start: 20100906
  2. OXYCONTIN [Suspect]
     Indication: INTERVERTEBRAL DISC PROTRUSION
     Dosage: 20MG DAILY
     Dates: start: 20100906
  3. OXYCONTIN [Suspect]
     Indication: NERVOUS SYSTEM DISORDER
     Dosage: 20MG DAILY
     Dates: start: 20100906

REACTIONS (3)
  - PRODUCT FORMULATION ISSUE [None]
  - PRODUCT SUBSTITUTION ISSUE [None]
  - VOMITING [None]
